FAERS Safety Report 11234064 (Version 1)
Quarter: 2015Q3

REPORT INFORMATION
  Report Type: Spontaneous
  Country: NZ (occurrence: NZ)
  Receive Date: 20150702
  Receipt Date: 20150702
  Transmission Date: 20151125
  Serious: Yes (Death, Hospitalization, Other)
  Sender: FDA-Public Use
  Company Number: PHHY2015NZ078453

PATIENT
  Age: 80 Year
  Sex: Male

DRUGS (7)
  1. IBUPROFEN. [Concomitant]
     Active Substance: IBUPROFEN
     Indication: PAIN IN EXTREMITY
     Dosage: 400 MG, PRN (AS REQUIRED)
     Route: 065
     Dates: start: 20120105
  2. VOLTAREN [Suspect]
     Active Substance: DICLOFENAC SODIUM
     Dosage: UNK
     Route: 065
  3. VOLTAREN [Suspect]
     Active Substance: DICLOFENAC SODIUM
     Indication: MUSCULOSKELETAL PAIN
     Dosage: 25 MG, TID (3 TIMES DAILY AS REQUIRED)
     Route: 065
     Dates: start: 20070614, end: 20070928
  4. OMEPRAZOLE. [Concomitant]
     Active Substance: OMEPRAZOLE
     Indication: PRODUCT USED FOR UNKNOWN INDICATION
     Route: 065
  5. KENACORT [Concomitant]
     Active Substance: TRIAMCINOLONE
     Indication: PRODUCT USED FOR UNKNOWN INDICATION
     Route: 065
  6. KENACORT [Concomitant]
     Active Substance: TRIAMCINOLONE
     Indication: ARTHRALGIA
  7. VOLTAREN [Suspect]
     Active Substance: DICLOFENAC SODIUM
     Dosage: 75 MG, BID (TO BE TAKEN AS REQUIRED)
     Route: 065
     Dates: start: 20120110, end: 20120207

REACTIONS (20)
  - Multi-organ failure [Fatal]
  - Renal impairment [Recovered/Resolved]
  - Prostatomegaly [Unknown]
  - Peripheral swelling [Unknown]
  - Reaction to drug excipients [Unknown]
  - Pain [Unknown]
  - Syncope [Unknown]
  - Arthralgia [Unknown]
  - Acute kidney injury [Unknown]
  - Death [Fatal]
  - Gout [Unknown]
  - Bradycardia [Unknown]
  - Bladder disorder [Unknown]
  - Hypotension [Unknown]
  - Dizziness [Unknown]
  - Vomiting [Unknown]
  - Urinary retention [Unknown]
  - Cardiac arrest [Unknown]
  - Nervous system disorder [Unknown]
  - Duodenal ulcer [Unknown]

NARRATIVE: CASE EVENT DATE: 20070925
